FAERS Safety Report 6279409-X (Version None)
Quarter: 2009Q3

REPORT INFORMATION
  Report Type: 
  Country: None (occurrence: None)
  Receive Date: 20090723
  Receipt Date: 20090716
  Transmission Date: 20100115
  Serious: Yes (Other)
  Sender: FDA-Public Use
  Company Number: US-GENENTECH-286298

PATIENT
  Sex: Male
  Weight: 99.773 kg

DRUGS (5)
  1. BEVACIZUMAB [Suspect]
     Indication: CORNEAL NEOVASCULARISATION
     Dosage: 25 MG/ML, QID
     Route: 061
     Dates: start: 20071017
  2. BEVACIZUMAB [Suspect]
     Indication: ULCERATIVE KERATITIS
  3. BEVACIZUMAB [Suspect]
     Indication: CORNEAL TRANSPLANT
  4. DOXYCYCLINE [Concomitant]
     Indication: DRUG USE FOR UNKNOWN INDICATION
     Dosage: 100 MG, BID
     Route: 048
  5. PRED FORTE [Concomitant]
     Indication: DRUG USE FOR UNKNOWN INDICATION
     Dosage: 1 GTT, QID

REACTIONS (1)
  - ULCERATIVE KERATITIS [None]
